FAERS Safety Report 4388296-6 (Version None)
Quarter: 2004Q2

REPORT INFORMATION
  Report Type: 
  Country: None (occurrence: None)
  Receive Date: 20040625
  Receipt Date: 20040614
  Transmission Date: 20050107
  Serious: Yes (Hospitalization)
  Sender: FDA-Public Use
  Company Number: A04200400547

PATIENT
  Sex: Female

DRUGS (1)
  1. ELOXATIN [Suspect]
     Indication: COLON CANCER
     Dosage: INTRAVENOUS DRIP
     Route: 041
     Dates: start: 20040101, end: 20040101

REACTIONS (4)
  - ADVERSE DRUG REACTION [None]
  - MYOCLONUS [None]
  - PARAESTHESIA [None]
  - SUICIDAL IDEATION [None]
